FAERS Safety Report 6241011-3 (Version None)
Quarter: 2009Q2

REPORT INFORMATION
  Report Type: 
  Country: None (occurrence: None)
  Receive Date: 20090623
  Receipt Date: 20090610
  Transmission Date: 20091009
  Serious: Yes (Other)
  Sender: FDA-Public Use
  Company Number: B0579563A

PATIENT

DRUGS (6)
  1. BUSULFAN [Suspect]
  2. MELPHALAN HYDROCHLORIDE [Suspect]
  3. FLUDARABINE PHOSPHATE [Suspect]
  4. ANTITHYMOCYTE GLOBULIN [Suspect]
  5. THIOTEPA [Suspect]
  6. IRRADIATION [Suspect]

REACTIONS (2)
  - CYTOMEGALOVIRUS CHORIORETINITIS [None]
  - DRUG TOXICITY [None]
